FAERS Safety Report 14288038 (Version 2)
Quarter: 2018Q1

REPORT INFORMATION
  Report Type: Spontaneous
  Country: IN (occurrence: IN)
  Receive Date: 20171215
  Receipt Date: 20180307
  Transmission Date: 20180509
  Serious: Yes (Hospitalization, Other)
  Sender: FDA-Public Use
  Company Number: IN-CONCORDIA PHARMACEUTICALS INC.-E2B_00008840

PATIENT
  Age: 40 Year
  Sex: Male

DRUGS (4)
  1. MYCOPHENOLATE MOFETIL. [Suspect]
     Active Substance: MYCOPHENOLATE MOFETIL
     Indication: IMMUNOSUPPRESSION
  2. PREDNISOLONE. [Suspect]
     Active Substance: PREDNISOLONE
     Indication: IMMUNOSUPPRESSION
  3. BASILIXIMAB 20 MG [Suspect]
     Active Substance: BASILIXIMAB
     Dosage: TWO DOSES; IN TOTAL; INDUCTION THERAPY,BASILIXIMAB: 20MG
  4. TACROLIMUS. [Suspect]
     Active Substance: TACROLIMUS
     Indication: IMMUNOSUPPRESSION

REACTIONS (4)
  - Strongyloidiasis [Recovered/Resolved]
  - Klebsiella infection [Recovering/Resolving]
  - Candida infection [Recovering/Resolving]
  - Schistosomiasis [Recovering/Resolving]
